FAERS Safety Report 4553139-4 (Version None)
Quarter: 2005Q1

REPORT INFORMATION
  Report Type: 
  Country: None (occurrence: None)
  Receive Date: 20050114
  Receipt Date: 20031219
  Transmission Date: 20050727
  Serious: Yes (Hospitalization)
  Sender: FDA-Public Use
  Company Number: US-GLAXOSMITHKLINE-A0492672A

PATIENT
  Age: 20 Year
  Sex: Female

DRUGS (6)
  1. PAXIL [Suspect]
     Indication: DEPRESSION
     Dosage: 30MG PER DAY
     Route: 048
     Dates: start: 20010411, end: 20020601
  2. AMBIEN [Concomitant]
     Route: 048
  3. FLEXERIL [Concomitant]
     Route: 048
  4. DICLOFENAC [Concomitant]
  5. XANAX [Concomitant]
  6. ALCOHOL [Concomitant]

REACTIONS (5)
  - ALCOHOL USE [None]
  - DRUG WITHDRAWAL SYNDROME [None]
  - SUICIDE ATTEMPT [None]
  - TREMOR [None]
  - WEIGHT INCREASED [None]
